FAERS Safety Report 4451345-0 (Version None)
Quarter: 2004Q3

REPORT INFORMATION
  Report Type: 
  Country: None (occurrence: None)
  Receive Date: 20040916
  Receipt Date: 20040526
  Transmission Date: 20050211
  Serious: Yes (Hospitalization, Other)
  Sender: FDA-Public Use
  Company Number: US-BRISTOL-MYERS SQUIBB COMPANY-12596888

PATIENT
  Age: 56 Year
  Sex: Female

DRUGS (30)
  1. CARBOPLATIN [Suspect]
     Indication: OVARIAN CANCER
     Dosage: CYCLE 1: 31-MAR-2003
     Route: 042
     Dates: start: 20030425, end: 20030425
  2. PACLITAXEL [Suspect]
     Indication: OVARIAN CANCER
     Dosage: CYCLE 1: 31-MAR-2003
     Route: 042
     Dates: start: 20030425, end: 20030425
  3. NEXIUM [Concomitant]
     Dates: start: 20010101
  4. PAVABID [Concomitant]
     Dates: start: 19970101
  5. COUMADIN [Concomitant]
     Dates: start: 20030324, end: 20030519
  6. POTASSIUM [Concomitant]
     Dates: start: 20030324
  7. PERI-COLACE [Concomitant]
     Dates: start: 20030310
  8. PAXIL [Concomitant]
     Dosage: CONTINUED FROM 21-MAY-2003
     Dates: start: 20030310
  9. ADVIL [Concomitant]
     Dates: start: 20030310
  10. AMBIEN [Concomitant]
     Dates: start: 20030321
  11. REGLAN [Concomitant]
     Dates: start: 20030321
  12. DURAGESIC [Concomitant]
     Dates: start: 20030328
  13. PERCOCET [Concomitant]
     Dates: start: 20030328
  14. DECADRON [Concomitant]
     Dates: start: 20030330
  15. ZOFRAN [Concomitant]
     Dosage: ALSO ADMINISTERED FROM 13-MAY-2003 TO 16-MAY-2003
     Dates: start: 20030331
  16. ATIVAN [Concomitant]
     Dosage: CONTINUED FROM 03-APR-2003
     Dates: start: 20030331
  17. DECADRON [Concomitant]
     Dates: start: 20030331
  18. BENADRYL [Concomitant]
     Dosage: ALSO ADMINISTERED ON 14-MAY-2003 AND FROM 17-MAY-2003 TO 18-MAY-2003
     Dates: start: 20030331
  19. PROCRIT [Concomitant]
     Dates: start: 20030508
  20. ANZEMET [Concomitant]
     Dates: start: 20030331
  21. DEMEROL [Concomitant]
     Dates: start: 20030513, end: 20030601
  22. PHENERGAN HCL [Concomitant]
     Dates: start: 20030513, end: 20030516
  23. FORTAZ [Concomitant]
     Dates: start: 20030513, end: 20030520
  24. SENOKOT [Concomitant]
     Dates: start: 20030514
  25. TYLENOL [Concomitant]
     Dates: start: 20030514, end: 20030514
  26. LASIX [Concomitant]
     Dates: start: 20030514, end: 20030514
  27. NEUPOGEN [Concomitant]
     Dates: start: 20030515, end: 20030516
  28. HUMIBID L.A. [Concomitant]
     Dates: start: 20030516, end: 20030518
  29. ATARAX [Concomitant]
     Dates: start: 20030519, end: 20030601
  30. LIDEX [Concomitant]
     Dates: start: 20030519, end: 20030519

REACTIONS (4)
  - DEEP VEIN THROMBOSIS [None]
  - INFECTION [None]
  - LOBAR PNEUMONIA [None]
  - NEUTROPENIA [None]
